FAERS Safety Report 9794654 (Version 1)
Quarter: 2014Q1

REPORT INFORMATION
  Report Type: Spontaneous
  Country: GB (occurrence: GB)
  Receive Date: 20140102
  Receipt Date: 20140102
  Transmission Date: 20141002
  Serious: Yes (Hospitalization)
  Sender: FDA-Public Use
  Company Number: GB-WATSON-2013-23761

PATIENT
  Age: 18 Year
  Sex: Male
  Weight: 63 kg

DRUGS (3)
  1. NAPROXEN (UNKNOWN) [Suspect]
     Indication: JOINT INJURY
     Dosage: 500 MG, UNKNOWN
     Route: 048
     Dates: start: 20131125, end: 20131127
  2. PARACETAMOL [Concomitant]
     Indication: PRODUCT USED FOR UNKNOWN INDICATION
     Dosage: 1 G, UNKNOWN
     Route: 048
     Dates: start: 20131024
  3. CO-CODAMOL [Concomitant]
     Indication: PRODUCT USED FOR UNKNOWN INDICATION
     Dosage: TWO 30/500 DOSE, FOUR TIMES A DAY
     Route: 048
     Dates: start: 20131125

REACTIONS (2)
  - Acute abdomen [Recovering/Resolving]
  - Gastric ulcer [Recovering/Resolving]
